FAERS Safety Report 18284378 (Version 1)
Quarter: 2020Q3

REPORT INFORMATION
  Report Type: Spontaneous
  Country: US (occurrence: US)
  Receive Date: 20200918
  Receipt Date: 20200918
  Transmission Date: 20201103
  Serious: No
  Sender: FDA-Public Use
  Company Number: US-MYLANLABS-2020M1078998

PATIENT
  Age: 63 Year
  Sex: Female
  Weight: 142 kg

DRUGS (6)
  1. PENICILLIN                         /00000901/ [Suspect]
     Active Substance: PENICILLIN G
     Indication: PRODUCT USED FOR UNKNOWN INDICATION
     Dosage: UNK
  2. NYSTATIN. [Suspect]
     Active Substance: NYSTATIN
     Indication: PRODUCT USED FOR UNKNOWN INDICATION
     Dosage: UNK
  3. DIOVAN [Suspect]
     Active Substance: VALSARTAN
     Indication: HYPERTENSION
     Dosage: UNK
  4. SULFA                              /00076401/ [Suspect]
     Active Substance: SULFADIAZINE
     Indication: PRODUCT USED FOR UNKNOWN INDICATION
     Dosage: UNK
  5. BIOTIN [Suspect]
     Active Substance: BIOTIN
     Indication: PRODUCT USED FOR UNKNOWN INDICATION
     Dosage: UNK
  6. FEBUXOSTAT TABLETS [Suspect]
     Active Substance: FEBUXOSTAT
     Indication: GOUT
     Dosage: EVERY OTHER DAY
     Dates: start: 20200910

REACTIONS (6)
  - Urticaria [Unknown]
  - Drug hypersensitivity [Unknown]
  - Headache [Unknown]
  - Heart rate increased [Unknown]
  - Therapeutic product effect increased [Not Recovered/Not Resolved]
  - Nausea [Unknown]

NARRATIVE: CASE EVENT DATE: 20200910
